FAERS Safety Report 15488928 (Version 1)
Quarter: 2018Q4

REPORT INFORMATION
  Report Type: Spontaneous
  Country: GB (occurrence: GB)
  Receive Date: 20181011
  Receipt Date: 20181011
  Transmission Date: 20190205
  Serious: Yes (Life-Threatening)
  Sender: FDA-Public Use
  Company Number: GB-PFIZER INC-2018408038

PATIENT
  Age: 37 Year
  Sex: Female
  Weight: 82.5 kg

DRUGS (12)
  1. MORPHINE SULFATE. [Suspect]
     Active Substance: MORPHINE SULFATE
     Dosage: UNK
     Dates: start: 20180917, end: 20180918
  2. NEOSTIGMINE. [Suspect]
     Active Substance: NEOSTIGMINE METHYLSULFATE
     Dosage: UNK
     Dates: start: 20180917, end: 20180918
  3. ONDANSETRON HCL [Suspect]
     Active Substance: ONDANSETRON HYDROCHLORIDE
     Dosage: UNK
     Dates: start: 20180917, end: 20180918
  4. PROPOFOL. [Suspect]
     Active Substance: PROPOFOL
     Dosage: UNK
     Dates: start: 20180917, end: 20180918
  5. CO-AMOXICLAV [Suspect]
     Active Substance: AMOXICILLIN\CLAVULANATE POTASSIUM
     Dosage: UNK
     Dates: start: 20180917, end: 20180918
  6. ROCURONIUM BROMIDE. [Suspect]
     Active Substance: ROCURONIUM BROMIDE
     Dates: start: 20180917, end: 20180918
  7. BETADIN [Suspect]
     Active Substance: POVIDONE-IODINE
     Dosage: SKIN PREP
     Route: 061
     Dates: start: 20180917, end: 20180918
  8. FENTANYL. [Suspect]
     Active Substance: FENTANYL
     Dosage: UNK
     Dates: start: 20180917, end: 20180918
  9. GLYCOPYRRONIUM BROMIDE [Suspect]
     Active Substance: GLYCOPYRRONIUM
     Dates: start: 20180917, end: 20180918
  10. TISEPT [CETRIMIDE;CHLORHEXIDINE GLUCONATE] [Suspect]
     Active Substance: CETRIMIDE\CHLORHEXIDINE
     Dosage: SKIN PREP
     Route: 061
     Dates: start: 20180917, end: 20180918
  11. CITALOPRAM HYDROCHLORIDE [Concomitant]
     Active Substance: CITALOPRAM HYDROCHLORIDE
     Dosage: UNK
  12. PARACETAMOL [Suspect]
     Active Substance: ACETAMINOPHEN
     Dosage: UNK
     Dates: start: 20180917, end: 20180918

REACTIONS (1)
  - Anaphylactic reaction [Recovering/Resolving]

NARRATIVE: CASE EVENT DATE: 20180917
